FAERS Safety Report 18610420 (Version 1)
Quarter: 2020Q4

REPORT INFORMATION
  Report Type: Other
  Country: WF (occurrence: WF)
  Receive Date: 20201214
  Receipt Date: 20201214
  Transmission Date: 20210114
  Serious: Yes (Death, Other)
  Sender: FDA-Public Use
  Company Number: WF-PFIZER INC-2020491152

PATIENT
  Age: 18 Year
  Sex: Male

DRUGS (2)
  1. DOXYCYCLINE MONOHYDRATE [Suspect]
     Active Substance: DOXYCYCLINE
     Dosage: UNK
     Dates: start: 20120102
  2. DOXYCYCLINE MONOHYDRATE [Suspect]
     Active Substance: DOXYCYCLINE
     Indication: ACNE
     Dosage: UNK
     Dates: start: 20100101, end: 20110108

REACTIONS (8)
  - Respiratory failure [Unknown]
  - Hostility [Unknown]
  - Completed suicide [Fatal]
  - Respiratory depression [Unknown]
  - Depression [Unknown]
  - Aggression [Unknown]
  - Asphyxia [Unknown]
  - Depressed mood [Unknown]
